FAERS Safety Report 12495990 (Version 3)
Quarter: 2017Q2

REPORT INFORMATION
  Report Type: Spontaneous
  Country: US (occurrence: US)
  Receive Date: 20160624
  Receipt Date: 20170623
  Transmission Date: 20170830
  Serious: No
  Sender: FDA-Public Use
  Company Number: US-BAUSCH-BL-2016-007739

PATIENT
  Age: 43 Year
  Sex: Female
  Weight: 54.03 kg

DRUGS (5)
  1. BIOTIN [Concomitant]
     Active Substance: BIOTIN
     Indication: SUPPLEMENTATION THERAPY
     Route: 048
  2. JUBLIA [Suspect]
     Active Substance: EFINACONAZOLE
     Indication: FUNGAL INFECTION
     Route: 061
  3. VITAMIN D [Concomitant]
     Active Substance: CHOLECALCIFEROL
     Indication: BONE LOSS
     Route: 048
  4. TINEACIDE [Concomitant]
     Active Substance: UNDECYLENIC ACID
     Indication: FUNGAL INFECTION
     Dosage: APPLIED ONCE TO TWICE DAILY ON NAILS
     Route: 061
  5. JUBLIA [Suspect]
     Active Substance: EFINACONAZOLE
     Route: 061

REACTIONS (1)
  - Drug ineffective [Unknown]
